FAERS Safety Report 6969338-8 (Version None)
Quarter: 2010Q3

REPORT INFORMATION
  Report Type: 
  Country: None (occurrence: None)
  Receive Date: 20100907
  Receipt Date: 20100827
  Transmission Date: 20110219
  Serious: Yes (Hospitalization)
  Sender: FDA-Public Use
  Company Number: PHHY2010US57484

PATIENT
  Sex: Female

DRUGS (18)
  1. RECLAST [Suspect]
     Indication: OSTEOPOROSIS
     Dosage: 5 MG
     Route: 042
     Dates: start: 20100518
  2. CELEBREX [Concomitant]
     Dosage: 200 MG X DAY
  3. MULTI-VIT [Concomitant]
     Dosage: UNK
  4. LUMIGAN [Concomitant]
     Dosage: UNK
  5. COLACE [Concomitant]
  6. DULCOLAX [Concomitant]
     Dosage: 5 MG
  7. VOLTAREN [Concomitant]
  8. ACETAMINOPHEN [Concomitant]
  9. HYDROCODONE [Concomitant]
  10. SYSTANE (PROPYLENE GLYCOL/MACROGOL) [Concomitant]
  11. MELATONIN [Concomitant]
  12. ASPIRIN [Concomitant]
  13. LEXAPRO [Concomitant]
  14. SINGULAIR [Concomitant]
     Dosage: UNK
  15. DIOVAN [Concomitant]
  16. LEVOXYL [Concomitant]
     Dosage: UNK
  17. MILK MAGNESIA [Concomitant]
  18. CALCIUM WITH VITAMIN D [Concomitant]
     Dosage: UNK

REACTIONS (2)
  - AMNESIA [None]
  - CEREBROVASCULAR ACCIDENT [None]
